FAERS Safety Report 10586976 (Version 1)
Quarter: 2014Q4

REPORT INFORMATION
  Report Type: Spontaneous
  Country: JP (occurrence: JP)
  Receive Date: 20141117
  Receipt Date: 20141117
  Transmission Date: 20150529
  Serious: Yes (Other)
  Sender: FDA-Public Use
  Company Number: PHJP2014JP001309

PATIENT
  Age: 46 Year
  Sex: Male

DRUGS (2)
  1. LITHIUM [Concomitant]
     Active Substance: LITHIUM CARBONATE
     Indication: MANIA
     Dosage: 1200 MG, UNK
     Route: 048
  2. TEGRETOL [Suspect]
     Active Substance: CARBAMAZEPINE
     Indication: MANIA
     Dosage: 1200 MG, UNK
     Route: 048

REACTIONS (6)
  - Renal disorder [Unknown]
  - Blood creatinine increased [Unknown]
  - Gamma-glutamyltransferase increased [Unknown]
  - Blood cholesterol increased [Unknown]
  - Liver disorder [Unknown]
  - Blood triglycerides increased [Unknown]
